FAERS Safety Report 14109814 (Version 1)
Quarter: 2017Q4

REPORT INFORMATION
  Report Type: Spontaneous
  Country: US (occurrence: US)
  Receive Date: 20171020
  Receipt Date: 20171020
  Transmission Date: 20180321
  Serious: No
  Sender: FDA-Public Use
  Company Number: US-TEVA-737646ACC

PATIENT
  Sex: Female
  Weight: 49 kg

DRUGS (1)
  1. ESTRADIOL. [Suspect]
     Active Substance: ESTRADIOL
     Dates: start: 201701

REACTIONS (5)
  - Drug effect delayed [Unknown]
  - Mood swings [Unknown]
  - Middle insomnia [Unknown]
  - Palpitations [Unknown]
  - Tearfulness [Unknown]
